FAERS Safety Report 5616664-0 (Version None)
Quarter: 2008Q1

REPORT INFORMATION
  Report Type: 
  Country: None (occurrence: None)
  Receive Date: 20080206
  Receipt Date: 20080206
  Transmission Date: 20080703
  Serious: Yes (Other)
  Sender: FDA-Public Use
  Company Number: None

PATIENT
  Age: 42 Year
  Sex: Female
  Weight: 90.7194 kg

DRUGS (1)
  1. CHANTIX [Suspect]
     Indication: SMOKING CESSATION THERAPY
     Dosage: 0.5 AND 1 MG TABLETS  TWO TIMES A DAY  PO
     Route: 048
     Dates: start: 20071227, end: 20080125

REACTIONS (5)
  - ANGER [None]
  - DEPRESSION [None]
  - FEELING ABNORMAL [None]
  - LETHARGY [None]
  - MOOD ALTERED [None]
